FAERS Safety Report 4492499-X (Version None)
Quarter: 2004Q4

REPORT INFORMATION
  Report Type: 
  Country: None (occurrence: None)
  Receive Date: 20041104
  Receipt Date: 20041018
  Transmission Date: 20050328
  Serious: Yes (Life-Threatening, Hospitalization)
  Sender: FDA-Public Use
  Company Number: 200420338GDDC

PATIENT
  Age: 27 Year
  Sex: Male

DRUGS (1)
  1. TAXOTERE [Suspect]
     Indication: BRAIN STEM GLIOMA
     Route: 042
     Dates: start: 20041015

REACTIONS (6)
  - ANAPHYLACTIC SHOCK [None]
  - BLOOD PRESSURE IMMEASURABLE [None]
  - CHEST PAIN [None]
  - LOSS OF CONSCIOUSNESS [None]
  - PULSE ABSENT [None]
  - RESPIRATORY DISTRESS [None]
